FAERS Safety Report 25881974 (Version 1)
Quarter: 2025Q4

REPORT INFORMATION
  Report Type: Spontaneous
  Country: US (occurrence: US)
  Receive Date: 20251005
  Receipt Date: 20251005
  Transmission Date: 20260117
  Serious: No
  Sender: TEVA
  Company Number: US-TEVA-VS-3375757

PATIENT
  Age: 66 Year
  Sex: Female

DRUGS (1)
  1. AJOVY [Suspect]
     Active Substance: FREMANEZUMAB-VFRM
     Indication: Migraine with aura
     Dosage: (THREE INJECTIONS OF THE 225 MG AUTOINJECTORS TO EQUAL 675 MG PER DOSE) EVERY 3 MONTHS, 225/1.5 M...
     Route: 065

REACTIONS (1)
  - Migraine [Unknown]
